FAERS Safety Report 8415874-7 (Version None)
Quarter: 2012Q2

REPORT INFORMATION
  Report Type: 
  Country: None (occurrence: None)
  Receive Date: 20120606
  Receipt Date: 20120529
  Transmission Date: 20120825
  Serious: Yes (Other)
  Sender: FDA-Public Use
  Company Number: FR-SANOFI-AVENTIS-2011SA008170

PATIENT
  Age: 68 Year
  Sex: Male
  Weight: 84 kg

DRUGS (15)
  1. PENTOXIFYLLINE [Concomitant]
     Route: 048
     Dates: start: 20090910
  2. AMIODARONE HCL [Concomitant]
     Dates: start: 20090910
  3. TENORMIN [Concomitant]
     Route: 048
     Dates: start: 20070105
  4. LYRICA [Concomitant]
     Dates: start: 20100101
  5. ATACAND [Concomitant]
     Dates: start: 20080513
  6. ACETAMINOPHEN W/ PROPOXYPHENE HCL [Concomitant]
     Dates: start: 20100101
  7. AMIODARONE HCL [Suspect]
     Indication: ATRIAL FIBRILLATION
     Route: 048
     Dates: end: 20110104
  8. ASPIRIN [Concomitant]
     Route: 048
     Dates: start: 20090910
  9. ROSUVASTATIN [Concomitant]
     Dates: start: 20070108
  10. ESOMEPRAZOLE [Concomitant]
     Dates: start: 20100101
  11. DRONEDARONE HCL [Suspect]
     Indication: ATRIAL FIBRILLATION
     Route: 048
     Dates: start: 20110105, end: 20110123
  12. AMLODIPINE BESYLATE [Concomitant]
     Route: 048
     Dates: start: 20070105
  13. VOLTAREN [Concomitant]
     Dates: start: 20100101
  14. LASIX [Concomitant]
     Route: 048
     Dates: start: 20110112
  15. TAMSULOSIN HCL [Concomitant]
     Dates: start: 20100101

REACTIONS (3)
  - VISION BLURRED [None]
  - DIPLOPIA [None]
  - BURNING SENSATION [None]
